FAERS Safety Report 16743064 (Version 2)
Quarter: 2020Q2

REPORT INFORMATION
  Report Type: Report from Study
  Country: CA (occurrence: CA)
  Receive Date: 20190827
  Receipt Date: 20200511
  Transmission Date: 20200713
  Serious: Yes (Other)
  Sender: FDA-Public Use
  Company Number: CA-AMGEN-CANSP2019134445

PATIENT
  Sex: Male

DRUGS (6)
  1. METHOTREXATE. [Concomitant]
     Active Substance: METHOTREXATE
     Indication: RHEUMATOID ARTHRITIS
     Dosage: 25 MILLIGRAM, QWK
     Route: 048
  2. ENBREL [Suspect]
     Active Substance: ETANERCEPT
     Indication: RHEUMATOID ARTHRITIS
     Dosage: 50 MILLIGRAM, QWK
     Route: 065
  3. FOLIC ACID. [Concomitant]
     Active Substance: FOLIC ACID
     Indication: RHEUMATOID ARTHRITIS
     Dosage: 5 MILLIGRAM
     Route: 048
  4. XELJANZ [Concomitant]
     Active Substance: TOFACITINIB CITRATE
     Indication: RHEUMATOID ARTHRITIS
     Dosage: 5 MILLIGRAM, BID
     Route: 048
     Dates: start: 20160415
  5. APO-HYDROXYQUINE [Concomitant]
     Active Substance: HYDROXYCHLOROQUINE SULFATE
     Indication: RHEUMATOID ARTHRITIS
     Dosage: 200 MILLIGRAM
     Route: 065
  6. PREDNISONE. [Concomitant]
     Active Substance: PREDNISONE
     Indication: RHEUMATOID ARTHRITIS
     Dosage: UNK

REACTIONS (3)
  - Therapeutic product effect decreased [Unknown]
  - Nasal congestion [Unknown]
  - Finger deformity [Unknown]

NARRATIVE: CASE EVENT DATE: 2019
